FAERS Safety Report 7982740-0 (Version None)
Quarter: 2011Q4

REPORT INFORMATION
  Report Type: 
  Country: None (occurrence: None)
  Receive Date: 20111215
  Receipt Date: 20111212
  Transmission Date: 20120403
  Serious: Yes (Hospitalization, Other)
  Sender: FDA-Public Use
  Company Number: BR-ROCHE-759501

PATIENT
  Sex: Female
  Weight: 55.6 kg

DRUGS (6)
  1. ACETYLSALICYLIC ACID SRT [Concomitant]
  2. ENALAPRIL MALEATE [Concomitant]
  3. CRESTOR [Concomitant]
  4. MABTHERA [Suspect]
     Indication: RHEUMATOID ARTHRITIS
     Route: 042
     Dates: start: 20100401, end: 20100415
  5. PREDNISONE TAB [Concomitant]
  6. WARFARIN SODIUM [Concomitant]

REACTIONS (11)
  - OEDEMA PERIPHERAL [None]
  - PAIN [None]
  - ILL-DEFINED DISORDER [None]
  - SWELLING [None]
  - CARDIAC DISORDER [None]
  - HYPERTENSION [None]
  - RHEUMATOID ARTHRITIS [None]
  - DIABETES MELLITUS [None]
  - BLOOD CHOLESTEROL INCREASED [None]
  - CEREBROVASCULAR ACCIDENT [None]
  - PAIN IN EXTREMITY [None]
